FAERS Safety Report 10189354 (Version 1)
Quarter: 2014Q2

REPORT INFORMATION
  Report Type: Spontaneous
  Country: IT (occurrence: IT)
  Receive Date: 20140522
  Receipt Date: 20140522
  Transmission Date: 20141212
  Serious: Yes (Other)
  Sender: FDA-Public Use
  Company Number: IT-TEVA-482923ISR

PATIENT
  Age: 78 Year
  Sex: Female

DRUGS (1)
  1. ANASTROZOLO TEVA 1 MG [Suspect]
     Indication: BREAST CANCER
     Dosage: 1 MILLIGRAM DAILY;
     Route: 048
     Dates: start: 20131014, end: 20140120

REACTIONS (4)
  - Dysentery [Recovered/Resolved]
  - Arthralgia [Recovered/Resolved]
  - Asthenia [Recovered/Resolved]
  - Product substitution issue [Recovered/Resolved]
